FAERS Safety Report 8406891-1 (Version None)
Quarter: 2012Q2

REPORT INFORMATION
  Report Type: 
  Country: None (occurrence: None)
  Receive Date: 20120604
  Receipt Date: 20120531
  Transmission Date: 20120825
  Serious: Yes (Death)
  Sender: FDA-Public Use
  Company Number: AU-B.I. PHARMACEUTICALS,INC./RIDGEFIELD-2012-AU-00818AU

PATIENT
  Sex: Female
  Weight: 81 kg

DRUGS (4)
  1. INDAPAMIDE [Concomitant]
     Dates: start: 20100831
  2. VALSARTAN [Concomitant]
     Dosage: 320 MG
     Dates: start: 20111129
  3. PRADAXA [Suspect]
     Indication: CEREBROVASCULAR ACCIDENT PROPHYLAXIS
     Dosage: 220 MG
     Dates: start: 20110826
  4. PRADAXA [Suspect]
     Indication: ATRIAL FIBRILLATION

REACTIONS (1)
  - CEREBROVASCULAR ACCIDENT [None]
